FAERS Safety Report 5467534-2 (Version None)
Quarter: 2007Q3

REPORT INFORMATION
  Report Type: 
  Country: None (occurrence: None)
  Receive Date: 20070925
  Receipt Date: 20070921
  Transmission Date: 20080115
  Serious: Yes (Disabling)
  Sender: FDA-Public Use
  Company Number: GB-BOEHRINGER INGELHEIM PHARMACEUTICALS, INC.-2007-UK-02987UK

PATIENT
  Age: 76 Year
  Sex: Female

DRUGS (7)
  1. SPIRIVA [Suspect]
     Indication: CHRONIC OBSTRUCTIVE PULMONARY DISEASE
     Route: 055
     Dates: start: 20070626, end: 20070828
  2. FELODIPINE [Concomitant]
  3. HYPROMELLOSE [Concomitant]
     Dosage: 10ML, 4X A DAY
  4. IPRATROPIUM BROMIDE [Concomitant]
     Route: 055
  5. SALBUTAMOL [Concomitant]
     Route: 055
  6. TIOTROPIUM BROMIDE [Concomitant]
     Route: 055
  7. CARDIOPLEN XL [Concomitant]

REACTIONS (2)
  - MOUTH ULCERATION [None]
  - STOMATITIS [None]
